FAERS Safety Report 5017852-7 (Version None)
Quarter: 2006Q2

REPORT INFORMATION
  Report Type: 
  Country: None (occurrence: None)
  Receive Date: 20060605
  Receipt Date: 20060504
  Transmission Date: 20061013
  Serious: Yes (Other)
  Sender: FDA-Public Use
  Company Number: PHEH2006US05905

PATIENT
  Age: 80 Year
  Sex: Female

DRUGS (5)
  1. FEMARA [Concomitant]
     Indication: BREAST CANCER
  2. ZOMETA [Suspect]
     Indication: BREAST CANCER METASTATIC
     Dosage: 4 MG, MONTHLY
     Dates: start: 20050512, end: 20060303
  3. XELODA [Concomitant]
     Indication: BREAST CANCER
     Dates: start: 20010101, end: 20020801
  4. TAXOL [Concomitant]
     Indication: BREAST CANCER METASTATIC
     Dates: start: 20050401, end: 20050513
  5. NAVELBINE [Concomitant]
     Indication: BREAST CANCER METASTATIC
     Dates: start: 20050520, end: 20050715

REACTIONS (11)
  - DEEP VEIN THROMBOSIS [None]
  - ERYTHEMA [None]
  - LOCAL SWELLING [None]
  - ORAL PAIN [None]
  - OSTEONECROSIS [None]
  - PURULENT DISCHARGE [None]
  - SOFT TISSUE INFECTION [None]
  - TOOTH ABSCESS [None]
  - TOOTH EXTRACTION [None]
  - TOOTH INFECTION [None]
  - WOUND DEBRIDEMENT [None]
